FAERS Safety Report 12551997 (Version 1)
Quarter: 2016Q3

REPORT INFORMATION
  Report Type: Spontaneous
  Country: FR (occurrence: FR)
  Receive Date: 20160713
  Receipt Date: 20160713
  Transmission Date: 20161109
  Serious: Yes (Hospitalization)
  Sender: FDA-Public Use
  Company Number: FR-009507513-1607FRA003687

PATIENT
  Age: 15 Year
  Sex: Female

DRUGS (5)
  1. KARDEGIC [Suspect]
     Active Substance: ASPIRIN LYSINE
     Dosage: 1 DF, ONCE
     Route: 048
     Dates: start: 20160125, end: 20160125
  2. AERIUS [Suspect]
     Active Substance: DESLORATADINE
     Dosage: 1 DF, ONCE
     Route: 048
     Dates: start: 20160125, end: 20160125
  3. DOLIPRANE [Suspect]
     Active Substance: ACETAMINOPHEN
     Dosage: 1 DF, ONCE
     Route: 048
     Dates: start: 20160125, end: 20160125
  4. TARDYFERON [Suspect]
     Active Substance: FERROUS SULFATE
     Dosage: 1 DF, ONCE
     Route: 048
     Dates: start: 20160125, end: 20160125
  5. ZOFENOPRIL CALCIUM [Suspect]
     Active Substance: ZOFENOPRIL CALCIUM
     Dosage: 1 DF, ONCE
     Route: 048
     Dates: start: 20160125, end: 20160125

REACTIONS (1)
  - Poisoning [Recovered/Resolved]

NARRATIVE: CASE EVENT DATE: 20160125
